FAERS Safety Report 12656585 (Version 4)
Quarter: 2016Q3

REPORT INFORMATION
  Report Type: Report from Study
  Country: US (occurrence: US)
  Receive Date: 20160816
  Receipt Date: 20160920
  Transmission Date: 20161109
  Serious: Yes (Death)
  Sender: FDA-Public Use
  Company Number: PHEH2016US020506

PATIENT
  Age: 71 Year
  Sex: Male

DRUGS (1)
  1. JADENU [Suspect]
     Active Substance: DEFERASIROX
     Indication: MYELODYSPLASTIC SYNDROME
     Dosage: 360 MG, UNK
     Route: 065
     Dates: start: 20160115, end: 20160522

REACTIONS (1)
  - Death [Fatal]

NARRATIVE: CASE EVENT DATE: 20160522
